FAERS Safety Report 6921502-X (Version None)
Quarter: 2010Q3

REPORT INFORMATION
  Report Type: 
  Country: None (occurrence: None)
  Receive Date: 20100812
  Receipt Date: 20100805
  Transmission Date: 20110219
  Serious: Yes (Hospitalization, Other)
  Sender: FDA-Public Use
  Company Number: PHHO2010DE11105

PATIENT
  Sex: Female
  Weight: 85 kg

DRUGS (2)
  1. CERTICAN [Suspect]
     Indication: RENAL TRANSPLANT
     Dosage: 1 MG DAILY
     Route: 048
     Dates: start: 20100526, end: 20100721
  2. MYFORTIC [Suspect]
     Indication: RENAL TRANSPLANT
     Dosage: 1080 MG DAILY
     Route: 048
     Dates: start: 20100331

REACTIONS (7)
  - BLOOD CREATININE INCREASED [None]
  - DYSPNOEA [None]
  - HYPOKALAEMIA [None]
  - KIDNEY TRANSPLANT REJECTION [None]
  - OEDEMA [None]
  - POST PROCEDURAL HAEMORRHAGE [None]
  - RENAL FAILURE [None]
